FAERS Safety Report 5048813-X (Version None)
Quarter: 2006Q3

REPORT INFORMATION
  Report Type: 
  Country: None (occurrence: None)
  Receive Date: 20060705
  Receipt Date: 20060619
  Transmission Date: 20061208
  Serious: Yes (Death, Other)
  Sender: FDA-Public Use
  Company Number: DE200606000536

PATIENT
  Sex: Male

DRUGS (2)
  1. GEMCITABINE HYDROCHLORIDE (GEMCITABINE HYDROCHLORIDE) [Suspect]
     Indication: NON-SMALL CELL LUNG CANCER
     Dosage: 1200 MG/M2, OTHER, INTRAVENOUS; SEE IMAGE
     Route: 042
  2. VINORELBINE TARTRATE [Concomitant]

REACTIONS (6)
  - ARRHYTHMIA [None]
  - CARDIO-RESPIRATORY ARREST [None]
  - CARDIOPULMONARY FAILURE [None]
  - CYTOMEGALOVIRUS INFECTION [None]
  - HYPERTHYROIDISM [None]
  - PNEUMONIA PRIMARY ATYPICAL [None]
